FAERS Safety Report 9398380 (Version 1)
Quarter: 2013Q3

REPORT INFORMATION
  Report Type: Spontaneous
  Country: US (occurrence: US)
  Receive Date: 20130712
  Receipt Date: 20130712
  Transmission Date: 20140515
  Serious: No
  Sender: FDA-Public Use
  Company Number: US-GLAXOSMITHKLINE-A1012503A

PATIENT
  Age: 4 Year
  Sex: Female

DRUGS (1)
  1. FLOVENT [Suspect]
     Indication: PRODUCT USED FOR UNKNOWN INDICATION
     Route: 055

REACTIONS (6)
  - Irritability [Unknown]
  - Anger [Unknown]
  - Middle insomnia [Unknown]
  - Nightmare [Unknown]
  - Abnormal behaviour [Unknown]
  - Sleep disorder [Unknown]
